FAERS Safety Report 6496603-3 (Version None)
Quarter: 2009Q4

REPORT INFORMATION
  Report Type: 
  Country: None (occurrence: None)
  Receive Date: 20091214
  Receipt Date: 20091208
  Transmission Date: 20100525
  Serious: Yes (Hospitalization)
  Sender: FDA-Public Use
  Company Number: US-MERCK-0912USA01164

PATIENT
  Age: 71 Year
  Sex: Female

DRUGS (1)
  1. FOSAMAX [Suspect]
     Route: 048
     Dates: start: 20010101

REACTIONS (3)
  - FALL [None]
  - HIP FRACTURE [None]
  - STRESS FRACTURE [None]
